FAERS Safety Report 5458318-X (Version None)
Quarter: 2007Q3

REPORT INFORMATION
  Report Type: 
  Country: None (occurrence: None)
  Receive Date: 20070919
  Receipt Date: 20061212
  Transmission Date: 20080115
  Serious: No
  Sender: FDA-Public Use
  Company Number: US-BAUSCH-2006BL006720

PATIENT
  Age: 39 Year
  Sex: Female

DRUGS (2)
  1. NEOMYCIN AND POLYMYXIN B SULFATES AND DEXAMETHASONE OPHTHALMIC SUSP [Suspect]
     Route: 047
     Dates: start: 20061212, end: 20061212
  2. SULFACETAMIDE SODIUM [Concomitant]
     Dates: start: 20061120

REACTIONS (4)
  - HEADACHE [None]
  - MEDICATION ERROR [None]
  - MUSCLE RIGIDITY [None]
  - MUSCLE TIGHTNESS [None]
